FAERS Safety Report 13597817 (Version 3)
Quarter: 2018Q3

REPORT INFORMATION
  Report Type: Report from Study
  Country: US (occurrence: US)
  Receive Date: 20170531
  Receipt Date: 20180807
  Transmission Date: 20181010
  Serious: Yes (Other)
  Sender: FDA-Public Use
  Company Number: US-SA-2017SA081544

PATIENT
  Age: 37 Year
  Sex: Female

DRUGS (2)
  1. ALEMTUZUMAB [Suspect]
     Active Substance: ALEMTUZUMAB
     Dosage: 12 MG,QD
     Route: 041
     Dates: start: 20170425, end: 20170429
  2. SALINE [SODIUM CHLORIDE] [Suspect]
     Active Substance: SODIUM CHLORIDE
     Dosage: UNK UNK,UNK
     Route: 065

REACTIONS (27)
  - Feeling abnormal [Not Recovered/Not Resolved]
  - Dysphagia [Recovered/Resolved]
  - Lymphocyte count decreased [Not Recovered/Not Resolved]
  - Dysgeusia [Not Recovered/Not Resolved]
  - Painful respiration [Recovered/Resolved]
  - Dyspnoea [Recovered/Resolved]
  - Asthenia [Not Recovered/Not Resolved]
  - Aphasia [Recovered/Resolved]
  - Oropharyngeal pain [Recovered/Resolved]
  - Pyrexia [Recovered/Resolved]
  - Urticaria [Recovered/Resolved]
  - Tongue discomfort [Recovered/Resolved]
  - Tongue coated [Not Recovered/Not Resolved]
  - Arthralgia [Not Recovered/Not Resolved]
  - Aphasia [Recovered/Resolved]
  - Coating in mouth [Not Recovered/Not Resolved]
  - Oropharyngeal candidiasis [Recovered/Resolved]
  - Haemorrhoids [Not Recovered/Not Resolved]
  - Movement disorder [Not Recovered/Not Resolved]
  - Rash [Recovered/Resolved]
  - Back pain [Not Recovered/Not Resolved]
  - Musculoskeletal pain [Not Recovered/Not Resolved]
  - Oesophageal candidiasis [Recovering/Resolving]
  - Decreased appetite [Not Recovered/Not Resolved]
  - Dysphonia [Recovered/Resolved]
  - Wheezing [Recovered/Resolved]
  - Pain in extremity [Not Recovered/Not Resolved]

NARRATIVE: CASE EVENT DATE: 2017
